FAERS Safety Report 15380767 (Version 2)
Quarter: 2019Q3

REPORT INFORMATION
  Report Type: Spontaneous
  Country: US (occurrence: US)
  Receive Date: 20180913
  Receipt Date: 20190912
  Transmission Date: 20191004
  Serious: No
  Sender: FDA-Public Use
  Company Number: US-ASTELLAS-2017US053652

PATIENT
  Age: 70 Year
  Sex: Male

DRUGS (2)
  1. XTANDI [Suspect]
     Active Substance: ENZALUTAMIDE
     Indication: PRODUCT USED FOR UNKNOWN INDICATION
     Route: 048
     Dates: start: 20161228
  2. XTANDI [Suspect]
     Active Substance: ENZALUTAMIDE
     Route: 048
     Dates: start: 201710

REACTIONS (5)
  - Amnesia [Unknown]
  - Treatment noncompliance [Unknown]
  - Product supply issue [Unknown]
  - Arthralgia [Unknown]
  - Mental impairment [Unknown]

NARRATIVE: CASE EVENT DATE: 20171213
